FAERS Safety Report 8942681 (Version 2)
Quarter: 2012Q4

REPORT INFORMATION
  Report Type: 
  Country: FR (occurrence: FR)
  Receive Date: 20121204
  Receipt Date: 20121205
  Transmission Date: 20130627
  Serious: Yes (Death, Hospitalization, Other)
  Sender: FDA-Public Use
  Company Number: FR-PFIZER INC-2012296024

PATIENT
  Sex: Male

DRUGS (2)
  1. ARGANOVA [Suspect]
     Indication: HEPARIN-INDUCED THROMBOCYTOPENIA
     Dosage: 0.5 ug/kg/minute (100 mg/mL, 250 mg/2,5 mL)
     Route: 042
     Dates: start: 20121113, end: 20121114
  2. ORGARAN [Suspect]

REACTIONS (4)
  - Gastrointestinal ischaemia [Fatal]
  - Hepatocellular injury [Fatal]
  - Sepsis [Fatal]
  - Drug name confusion [Unknown]
